FAERS Safety Report 5338012-6 (Version None)
Quarter: 2007Q2

REPORT INFORMATION
  Report Type: 
  Country: None (occurrence: None)
  Receive Date: 20070327
  Receipt Date: 20070202
  Transmission Date: 20071010
  Serious: Yes (Hospitalization)
  Sender: FDA-Public Use
  Company Number: 235384

PATIENT
  Age: 65 Year
  Sex: Male

DRUGS (2)
  1. AVASTIN [Suspect]
     Indication: LUNG NEOPLASM MALIGNANT
     Dosage: 5 MG/KG, 1/WEEK
     Dates: start: 20061102, end: 20061220
  2. TAXOL [Concomitant]

REACTIONS (1)
  - PULMONARY HAEMORRHAGE [None]
